FAERS Safety Report 5478384-5 (Version None)
Quarter: 2007Q4

REPORT INFORMATION
  Report Type: 
  Country: None (occurrence: None)
  Receive Date: 20071005
  Receipt Date: 20070925
  Transmission Date: 20080405
  Serious: Yes (Death)
  Sender: FDA-Public Use
  Company Number: B0488687A

PATIENT
  Age: 46 Year
  Sex: Female
  Weight: 69 kg

DRUGS (2)
  1. LAPATINIB [Suspect]
     Dosage: 1250MG PER DAY
     Route: 048
     Dates: start: 20070725, end: 20070909
  2. CAPECITABINE [Suspect]
     Dosage: 2000MG PER DAY
     Route: 048
     Dates: start: 20070725, end: 20070910

REACTIONS (1)
  - DYSPNOEA [None]
